FAERS Safety Report 21809298 (Version 1)
Quarter: 2023Q1

REPORT INFORMATION
  Report Type: Report from Study
  Country: US (occurrence: US)
  Receive Date: 20230103
  Receipt Date: 20230103
  Transmission Date: 20230418
  Serious: No
  Sender: FDA-Public Use
  Company Number: US-ABBVIE-4213883

PATIENT
  Sex: Male

DRUGS (2)
  1. SKYRIZI [Suspect]
     Active Substance: RISANKIZUMAB-RZAA
     Indication: Psoriasis
     Route: 065
     Dates: start: 20220711
  2. Pfizer/BioNTech [Concomitant]
     Indication: COVID-19 immunisation

REACTIONS (1)
  - COVID-19 [Not Recovered/Not Resolved]
